FAERS Safety Report 5353047-5 (Version None)
Quarter: 2007Q2

REPORT INFORMATION
  Report Type: 
  Country: None (occurrence: None)
  Receive Date: 20070606
  Receipt Date: 20070517
  Transmission Date: 20071010
  Serious: Yes (Hospitalization)
  Sender: FDA-Public Use
  Company Number: ENTC2007-0147

PATIENT
  Sex: Male

DRUGS (5)
  1. STALEVO 100 [Suspect]
  2. ARICEPT [Concomitant]
  3. ASPIRIN [Concomitant]
  4. VENLAFAXINE HCL [Concomitant]
  5. PRAXILENE [Concomitant]

REACTIONS (6)
  - AGITATION [None]
  - CIRCULATORY COLLAPSE [None]
  - DISORIENTATION [None]
  - GENERAL PHYSICAL HEALTH DETERIORATION [None]
  - HALLUCINATION [None]
  - TREMOR [None]
